FAERS Safety Report 25004442 (Version 2)
Quarter: 2025Q1

REPORT INFORMATION
  Report Type: Spontaneous
  Country: CL (occurrence: CL)
  Receive Date: 20250224
  Receipt Date: 20250307
  Transmission Date: 20250408
  Serious: Yes (Life-Threatening, Other)
  Sender: TEVA
  Company Number: CL-TEVA-VS-3301654

PATIENT
  Age: 41 Year
  Sex: Female

DRUGS (6)
  1. MYCOPHENOLATE MOFETIL [Suspect]
     Active Substance: MYCOPHENOLATE MOFETIL
     Indication: Prophylaxis against transplant rejection
     Route: 065
     Dates: start: 201605
  2. BASILIXIMAB [Suspect]
     Active Substance: BASILIXIMAB
     Indication: Prophylaxis against transplant rejection
     Route: 065
     Dates: start: 201605
  3. EVEROLIMUS [Suspect]
     Active Substance: EVEROLIMUS
     Indication: Prophylaxis against transplant rejection
     Route: 065
  4. METHYLPREDNISOLONE [Suspect]
     Active Substance: METHYLPREDNISOLONE
     Indication: Prophylaxis against transplant rejection
     Route: 065
  5. TACROLIMUS [Suspect]
     Active Substance: TACROLIMUS
     Indication: Prophylaxis against transplant rejection
     Route: 065
     Dates: start: 201605
  6. TACROLIMUS [Suspect]
     Active Substance: TACROLIMUS
     Indication: Prophylaxis against transplant rejection
     Route: 065

REACTIONS (8)
  - Gastrointestinal disorder [Recovering/Resolving]
  - Arteriosclerosis [Unknown]
  - Drug ineffective [Unknown]
  - Renal tubular atrophy [Unknown]
  - Thrombotic microangiopathy [Recovered/Resolved]
  - Thrombocytopenia [Recovered/Resolved]
  - Kidney fibrosis [Unknown]
  - Blood lactate dehydrogenase increased [Unknown]

NARRATIVE: CASE EVENT DATE: 20220101
